FAERS Safety Report 14366427 (Version 2)
Quarter: 2018Q2

REPORT INFORMATION
  Report Type: Report from Study
  Country: AU (occurrence: AU)
  Receive Date: 20180109
  Receipt Date: 20180510
  Transmission Date: 20180711
  Serious: Yes (Hospitalization, Other)
  Sender: FDA-Public Use
  Company Number: PHHY2017AU197379

PATIENT
  Age: 75 Year
  Sex: Male

DRUGS (2)
  1. SANDOSTATIN LAR DEPOT [Suspect]
     Active Substance: OCTREOTIDE ACETATE
     Indication: ACROMEGALY
     Dosage: 40 MG, QMO
     Route: 030
  2. COVERSYL [Concomitant]
     Active Substance: PERINDOPRIL
     Indication: HYPERTENSION
     Dosage: 10 MG, QD
     Route: 048
     Dates: end: 20180408

REACTIONS (9)
  - Peripheral swelling [Not Recovered/Not Resolved]
  - Disorientation [Unknown]
  - Venous thrombosis limb [Unknown]
  - Fall [Unknown]
  - Facial paralysis [Recovered/Resolved]
  - Transient ischaemic attack [Recovered/Resolved with Sequelae]
  - Aphasia [Recovered/Resolved]
  - Confusional state [Unknown]
  - Gait disturbance [Unknown]

NARRATIVE: CASE EVENT DATE: 20171231
